FAERS Safety Report 6034617-8 (Version None)
Quarter: 2009Q1

REPORT INFORMATION
  Report Type: 
  Country: None (occurrence: None)
  Receive Date: 20090112
  Receipt Date: 20081229
  Transmission Date: 20090719
  Serious: Yes (Death)
  Sender: FDA-Public Use
  Company Number: CN-ROCHE-606639

PATIENT

DRUGS (5)
  1. TRETINOIN [Suspect]
     Route: 065
  2. DAUNORUBICIN HCL [Suspect]
     Route: 065
  3. IDARUBICIN HCL [Suspect]
     Route: 065
  4. CYTARABINE [Suspect]
     Route: 065
  5. ACLARUBICIN [Suspect]
     Route: 065

REACTIONS (2)
  - DISSEMINATED INTRAVASCULAR COAGULATION [None]
  - HAEMORRHAGE INTRACRANIAL [None]
